FAERS Safety Report 7516199-4 (Version None)
Quarter: 2011Q2

REPORT INFORMATION
  Report Type: 
  Country: None (occurrence: None)
  Receive Date: 20110601
  Receipt Date: 20110530
  Transmission Date: 20111010
  Serious: Yes (Other)
  Sender: FDA-Public Use
  Company Number: IL-PFIZER INC-2011116065

PATIENT
  Age: 25 Year
  Sex: Female

DRUGS (2)
  1. GEODON [Suspect]
     Dosage: 60 MG, 1X/DAY
  2. SERTRALINE HYDROCHLORIDE [Concomitant]

REACTIONS (2)
  - BLOOD PROLACTIN INCREASED [None]
  - ACTIVATION SYNDROME [None]
